FAERS Safety Report 7505357-0 (Version None)
Quarter: 2011Q2

REPORT INFORMATION
  Report Type: 
  Country: None (occurrence: None)
  Receive Date: 20110420
  Receipt Date: 20110224
  Transmission Date: 20111010
  Serious: Yes (Hospitalization)
  Sender: FDA-Public Use
  Company Number: PNT2-2010-00005

PATIENT
  Age: 37 Year
  Sex: Male
  Weight: 106.6 kg

DRUGS (8)
  1. SPD476 VS PLACEBO (CODE NOT BROKEN) TABLET [Suspect]
     Indication: DIVERTICULITIS
     Dates: start: 20090527
  2. NIASPAN [Concomitant]
  3. LIPOFEN (FENOFIBRATE) [Concomitant]
  4. CRESTOR [Concomitant]
  5. LOVAZA [Concomitant]
  6. ASPIRIN [Concomitant]
  7. LEXAPRO [Concomitant]
  8. TRICOR /00090101/ (ADENOSINE) [Concomitant]

REACTIONS (1)
  - ABDOMINAL PAIN [None]
